FAERS Safety Report 8763131 (Version 1)
Quarter: 2012Q4

REPORT INFORMATION
  Report Type: 
  Country: US (occurrence: US)
  Receive Date: 20120831
  Receipt Date: 20120831
  Transmission Date: 20130627
  Serious: Yes (Hospitalization)
  Sender: FDA-Public Use
  Company Number: US-BAYER-2012-089254

PATIENT
  Age: 22 Year
  Sex: Female

DRUGS (8)
  1. YAZ [Suspect]
     Indication: MENSTRUAL CYCLE MANAGEMENT
  2. GIANVI [Suspect]
     Indication: CONTRACEPTION
  3. BROMELAIN [Concomitant]
  4. IODINE [Concomitant]
  5. MULTIVITAMIN [Concomitant]
  6. ASPIRIN [Concomitant]
  7. SIMVASTATIN [Concomitant]
  8. TYLENOL [Concomitant]

REACTIONS (1)
  - Cerebrovascular accident [None]
